FAERS Safety Report 13312745 (Version 1)
Quarter: 2017Q1

REPORT INFORMATION
  Report Type: Spontaneous
  Country: US (occurrence: US)
  Receive Date: 20170309
  Receipt Date: 20170309
  Transmission Date: 20170428
  Serious: Yes (Other)
  Sender: FDA-Public Use
  Company Number: US-GLAXOSMITHKLINE-US2017032848

PATIENT
  Sex: Female

DRUGS (1)
  1. VALACICLOVIR HYDROCHLORIDE [Suspect]
     Active Substance: VALACYCLOVIR HYDROCHLORIDE
     Indication: PRODUCT USED FOR UNKNOWN INDICATION
     Dosage: UNK

REACTIONS (8)
  - Angioedema [Unknown]
  - Wheezing [Unknown]
  - Diarrhoea [Unknown]
  - Adverse event [Unknown]
  - Rash [Unknown]
  - Abdominal distension [Unknown]
  - Muscle spasms [Unknown]
  - Drug ineffective [Unknown]
